FAERS Safety Report 6466563-X (Version None)
Quarter: 2009Q4

REPORT INFORMATION
  Report Type: 
  Country: None (occurrence: None)
  Receive Date: 20091127
  Receipt Date: 20091124
  Transmission Date: 20100525
  Serious: Yes (Death)
  Sender: FDA-Public Use
  Company Number: 2009029227

PATIENT
  Age: 64 Year
  Sex: Female

DRUGS (5)
  1. NUVIGIL [Suspect]
     Indication: FATIGUE
     Dosage: ORAL
     Route: 048
     Dates: start: 20090901
  2. NUVIGIL [Suspect]
     Indication: SOMNOLENCE
     Dosage: ORAL
     Route: 048
     Dates: start: 20090901
  3. XANAX [Concomitant]
  4. ROXICODONE [Concomitant]
  5. DURAGESIC-100 [Concomitant]

REACTIONS (2)
  - MALIGNANT NEOPLASM PROGRESSION [None]
  - PANCREATIC CARCINOMA [None]
